FAERS Safety Report 4715737-4 (Version None)
Quarter: 2005Q2

REPORT INFORMATION
  Report Type: 
  Country: None (occurrence: None)
  Receive Date: 20050629
  Receipt Date: 20050307
  Transmission Date: 20051028
  Serious: No
  Sender: FDA-Public Use
  Company Number: SP00413

PATIENT
  Age: 56 Year
  Sex: Male
  Weight: 142.8831 kg

DRUGS (10)
  1. XIFAXAN [Suspect]
     Indication: DIARRHOEA
     Dosage: SEE IMAGE
     Route: 048
     Dates: start: 20050228, end: 20050306
  2. XIFAXAN [Suspect]
     Indication: DIARRHOEA
     Dosage: SEE IMAGE
     Route: 048
     Dates: start: 20041101
  3. HUMALOG INSULIN(UNKNOWN) [Concomitant]
  4. GLUCOPHAGE(UNKNOWN) [Concomitant]
  5. ACUPRIL(UNKNOWN) [Concomitant]
  6. HYDROCHLOROTHIAZIDE(UNKNOWN) [Concomitant]
  7. ALLOPURINOL [Concomitant]
  8. LOPRESSOR(UNKNOWN) [Concomitant]
  9. LIPITOR [Concomitant]
  10. TRICOR(UNKNOWN) [Concomitant]

REACTIONS (4)
  - CONDITION AGGRAVATED [None]
  - DIABETIC NEUROPATHY [None]
  - PAIN [None]
  - PARAESTHESIA [None]
